FAERS Safety Report 5261074-1 (Version None)
Quarter: 2007Q1

REPORT INFORMATION
  Report Type: 
  Country: None (occurrence: None)
  Receive Date: 20070309
  Receipt Date: 20070227
  Transmission Date: 20070707
  Serious: Yes (Other)
  Sender: FDA-Public Use
  Company Number: US-PFIZER INC-2006110896

PATIENT
  Age: 80 Year
  Sex: Male
  Weight: 68.9 kg

DRUGS (8)
  1. ZYVOX [Suspect]
     Indication: STAPHYLOCOCCAL INFECTION
     Route: 048
     Dates: start: 20060829, end: 20060909
  2. ALL OTHER THERAPEUTIC PRODUCTS [Concomitant]
  3. PHENYTOIN [Concomitant]
  4. FUROSEMIDE [Concomitant]
  5. ALL OTHER THERAPEUTIC PRODUCTS [Concomitant]
  6. LEVOTHYROXINE SODIUM [Concomitant]
  7. ASPIRIN [Concomitant]
  8. ENALAPRIL MALEATE [Concomitant]

REACTIONS (3)
  - DISEASE PROGRESSION [None]
  - PLATELET COUNT DECREASED [None]
  - WOUND DRAINAGE [None]
